FAERS Safety Report 7179439-X (Version None)
Quarter: 2010Q4

REPORT INFORMATION
  Report Type: 
  Country: None (occurrence: None)
  Receive Date: 20101221
  Receipt Date: 20101207
  Transmission Date: 20110411
  Serious: Yes (Hospitalization, Other)
  Sender: FDA-Public Use
  Company Number: PHHY2010US79548

PATIENT
  Sex: Male
  Weight: 176.42 kg

DRUGS (6)
  1. GLEEVEC [Suspect]
     Indication: CHRONIC MYELOID LEUKAEMIA
     Dosage: 400 MG, UNK
     Route: 048
     Dates: start: 20100125
  2. PROTONIX [Concomitant]
  3. COUMADIN [Concomitant]
  4. BENICAR [Concomitant]
  5. LOVENOX [Concomitant]
  6. HYDREA [Concomitant]

REACTIONS (8)
  - ABDOMINAL PAIN LOWER [None]
  - ANAEMIA [None]
  - DEEP VEIN THROMBOSIS [None]
  - HYPEREOSINOPHILIC SYNDROME [None]
  - HYPOXIA [None]
  - MUSCLE SPASMS [None]
  - RENAL CYST [None]
  - WHITE BLOOD CELL COUNT INCREASED [None]
